FAERS Safety Report 25196465 (Version 2)
Quarter: 2025Q2

REPORT INFORMATION
  Report Type: Spontaneous
  Country: IT (occurrence: IT)
  Receive Date: 20250415
  Receipt Date: 20250415
  Transmission Date: 20250717
  Serious: Yes (Other)
  Sender: SANDOZ
  Company Number: None

PATIENT
  Age: 10 Year
  Sex: Female
  Weight: 23 kg

DRUGS (29)
  1. ACETAMINOPHEN [Suspect]
     Active Substance: ACETAMINOPHEN
     Indication: Pain
     Route: 065
  2. ALPRAZOLAM [Suspect]
     Active Substance: ALPRAZOLAM
     Indication: Depression
     Dosage: 0.01 MG/KG, QD
     Route: 065
  3. ALPRAZOLAM [Suspect]
     Active Substance: ALPRAZOLAM
     Indication: Sleep disorder
     Dosage: 0.01 MG/KG, QD
     Route: 065
  4. ALPRAZOLAM [Suspect]
     Active Substance: ALPRAZOLAM
     Indication: Anxiety
     Route: 065
  5. ALPRAZOLAM [Suspect]
     Active Substance: ALPRAZOLAM
     Indication: Anxiety
  6. ALPRAZOLAM [Suspect]
     Active Substance: ALPRAZOLAM
     Indication: Depression
  7. ARIPIPRAZOLE [Suspect]
     Active Substance: ARIPIPRAZOLE
     Indication: Sleep disorder
     Dosage: 0.3 MG/KG, QD
     Route: 065
  8. ARIPIPRAZOLE [Suspect]
     Active Substance: ARIPIPRAZOLE
     Indication: Anxiety
  9. ARIPIPRAZOLE [Suspect]
     Active Substance: ARIPIPRAZOLE
     Indication: Depression
  10. CETIRIZINE [Suspect]
     Active Substance: CETIRIZINE HYDROCHLORIDE
     Indication: Pruritus
     Dosage: 1 MG/KG, QD
     Route: 065
  11. CHLORPHENIRAMINE MALEATE [Suspect]
     Active Substance: CHLORPHENIRAMINE MALEATE
     Indication: Pruritus
     Dosage: 0.2 MG/KG, QD
     Route: 065
  12. CHLORPHENIRAMINE MALEATE [Suspect]
     Active Substance: CHLORPHENIRAMINE MALEATE
     Dosage: 0.2 MG/KG, QD
     Route: 065
  13. DIAZEPAM [Suspect]
     Active Substance: DIAZEPAM
     Indication: Sleep disorder
     Dosage: 0.1 MG/KG, QD
     Route: 065
  14. DEXMEDETOMIDINE [Suspect]
     Active Substance: DEXMEDETOMIDINE
     Indication: Sleep disorder
     Dosage: 3 UNK, QD (MICROG/KG/DAY) (IV), (0.7 ML OF THE IV FORMULATION AT THE CONCENTRATION OF 100 MICROG/ML)
     Route: 042
  15. DEXMEDETOMIDINE [Suspect]
     Active Substance: DEXMEDETOMIDINE
     Dosage: AT A DOSE OF 3 MICROG/KG/DAY (0.7 ML OF THE IV FORMULATION AT THE CONCENTRATION OF 100 MICROG/ML
     Route: 045
  16. DEXMEDETOMIDINE [Suspect]
     Active Substance: DEXMEDETOMIDINE
     Dosage: AT A DOSE OF 3 MICROG/KG/DAY (0.7 ML OF THE IV FORMULATION AT THE CONCENTRATION OF 100 MICROG/ML)
     Route: 050
  17. GABAPENTIN [Suspect]
     Active Substance: GABAPENTIN
     Indication: Pain
     Dosage: 25 MG/KG, QD
     Route: 065
  18. IBUPROFEN [Suspect]
     Active Substance: IBUPROFEN
     Indication: Pain
     Route: 065
  19. MELATONIN [Suspect]
     Active Substance: MELATONIN
     Indication: Sleep disorder
     Dosage: 0.05 MG/KG, QD
     Route: 065
  20. METAMIZOLE [Suspect]
     Active Substance: METAMIZOLE
     Indication: Pain
     Dosage: 20 MG/KG, QD
     Route: 065
  21. NIAPRAZINE [Suspect]
     Active Substance: NIAPRAZINE
     Indication: Sleep disorder
     Dosage: 1 MG/KG, QD
     Route: 065
  22. NIAPRAZINE [Suspect]
     Active Substance: NIAPRAZINE
     Dosage: 1 MG/KG, QD
     Route: 065
  23. TRAMADOL [Suspect]
     Active Substance: TRAMADOL
     Dosage: 5 MG, QD
     Route: 065
  24. TRAMADOL [Suspect]
     Active Substance: TRAMADOL
     Indication: Pain
     Dosage: 6 MG/KG, QD
     Route: 065
  25. TRAZODONE [Suspect]
     Active Substance: TRAZODONE HYDROCHLORIDE
     Indication: Anxiety
     Dosage: 1 MG/KG, QD
     Route: 065
  26. TRAZODONE [Suspect]
     Active Substance: TRAZODONE HYDROCHLORIDE
     Indication: Depression
     Dosage: 1 MG/KG, QD
     Route: 065
  27. TRAZODONE [Suspect]
     Active Substance: TRAZODONE HYDROCHLORIDE
     Indication: Sleep disorder
     Dosage: 1 MG/KG, QD
     Route: 065
  28. KETAMINE [Concomitant]
     Active Substance: KETAMINE
     Indication: Sedation
     Dosage: 3.5 MG/KG DAILY;
     Route: 065
  29. PROPOFOL [Concomitant]
     Active Substance: PROPOFOL
     Indication: Sedation
     Dosage: 5 MG/KG, QD (3 TIMES A WEEK)
     Route: 065

REACTIONS (9)
  - Agitation [Unknown]
  - Sleep disorder [Recovering/Resolving]
  - Paradoxical drug reaction [Unknown]
  - Irritability [Unknown]
  - Quality of life decreased [Unknown]
  - Fatigue [Unknown]
  - Confusional arousal [Unknown]
  - Drug ineffective [Unknown]
  - Off label use [Unknown]
